FAERS Safety Report 6480070-X (Version None)
Quarter: 2009Q4

REPORT INFORMATION
  Report Type: 
  Country: None (occurrence: None)
  Receive Date: 20091208
  Receipt Date: 20091126
  Transmission Date: 20100525
  Serious: Yes (Hospitalization, Other)
  Sender: FDA-Public Use
  Company Number: NSADSS2002016467

PATIENT
  Age: 67 Year
  Sex: Female

DRUGS (10)
  1. REMICADE [Suspect]
     Route: 041
  2. REMICADE [Suspect]
     Route: 041
  3. REMICADE [Suspect]
     Route: 041
  4. REMICADE [Suspect]
     Indication: RHEUMATOID ARTHRITIS
     Route: 041
  5. METHOTREXATE [Suspect]
     Indication: RHEUMATOID ARTHRITIS
     Dates: start: 20011210
  6. LEFLUNOMIDE [Suspect]
     Indication: RHEUMATOID ARTHRITIS
     Dates: start: 20020111
  7. DICLOFENAC [Concomitant]
     Indication: RHEUMATOID ARTHRITIS
     Dates: start: 19890101
  8. IDEOS [Concomitant]
     Indication: RHEUMATOID ARTHRITIS
     Dates: start: 19991201
  9. LEDERFOLIN [Concomitant]
     Indication: RHEUMATOID ARTHRITIS
     Dates: start: 19890101
  10. PARACETAMOL [Concomitant]
     Dates: start: 19890101

REACTIONS (5)
  - CANDIDIASIS [None]
  - GASTROENTERITIS [None]
  - NOSOCOMIAL INFECTION [None]
  - PNEUMONIA CYTOMEGALOVIRAL [None]
  - STAPHYLOCOCCAL INFECTION [None]
